FAERS Safety Report 8979498 (Version 1)
Quarter: 2012Q4

REPORT INFORMATION
  Report Type: 
  Country: CH (occurrence: CH)
  Receive Date: 20121221
  Receipt Date: 20121221
  Transmission Date: 20130627
  Serious: Yes (Hospitalization)
  Sender: FDA-Public Use
  Company Number: US-MERCK-1212CHE003311

PATIENT
  Age: 42 Year
  Sex: Male

DRUGS (5)
  1. JANUVIA [Suspect]
     Indication: TYPE 2 DIABETES MELLITUS
     Dosage: 25 mg, qd
     Route: 048
     Dates: start: 201004
  2. ISONIAZID\RIFAMPIN [Suspect]
     Indication: DISSEMINATED TUBERCULOSIS
     Dosage: 150 mg, qd
     Route: 048
     Dates: start: 201004
  3. NEXIUM [Suspect]
     Indication: DUODENAL ULCER
     Dosage: 40 mg, qd
     Route: 048
  4. PREDNISONE [Concomitant]
     Indication: KIDNEY TRANSPLANT REJECTION
  5. TORSEMIDE [Concomitant]
     Dosage: 100 mg, UNK
     Route: 065

REACTIONS (6)
  - Electrolyte imbalance [Not Recovered/Not Resolved]
  - Hyperkalaemia [Not Recovered/Not Resolved]
  - Catheter placement [Not Recovered/Not Resolved]
  - Renal failure acute [Not Recovered/Not Resolved]
  - Metabolic acidosis [Not Recovered/Not Resolved]
  - Haemodialysis [Not Recovered/Not Resolved]
